FAERS Safety Report 18695130 (Version 1)
Quarter: 2021Q1

REPORT INFORMATION
  Report Type: Spontaneous
  Country: US (occurrence: US)
  Receive Date: 20210104
  Receipt Date: 20210104
  Transmission Date: 20210419
  Serious: Yes (Other)
  Sender: FDA-Public Use
  Company Number: US-SLATE RUN PHARMACEUTICALS-20US000358

PATIENT

DRUGS (2)
  1. BUPROPION HYDROCHLORIDE EXTENDED RELEASE TABLETS USP (SR) [Suspect]
     Active Substance: BUPROPION HYDROCHLORIDE
     Indication: DEPRESSION
     Dosage: 53 DOSAGE FORM, SINGLE
     Route: 048
  2. BUPROPION HYDROCHLORIDE EXTENDED RELEASE TABLETS USP (SR) [Suspect]
     Active Substance: BUPROPION HYDROCHLORIDE
     Dosage: UNK
     Route: 065

REACTIONS (12)
  - Electrocardiogram QT prolonged [Recovering/Resolving]
  - Generalised tonic-clonic seizure [Recovering/Resolving]
  - Supraventricular tachycardia [Recovering/Resolving]
  - Mental impairment [Unknown]
  - Suicide attempt [Recovering/Resolving]
  - Pain [Recovering/Resolving]
  - Electrocardiogram QRS complex prolonged [Recovering/Resolving]
  - Seizure [Recovering/Resolving]
  - Serotonin syndrome [Recovering/Resolving]
  - Sinus tachycardia [Recovering/Resolving]
  - Electroencephalogram abnormal [Unknown]
  - Intentional overdose [Recovering/Resolving]
